FAERS Safety Report 8462673-6 (Version None)
Quarter: 2012Q2

REPORT INFORMATION
  Report Type: 
  Country: None (occurrence: None)
  Receive Date: 20120625
  Receipt Date: 20120625
  Transmission Date: 20120825
  Serious: Yes (Hospitalization)
  Sender: FDA-Public Use
  Company Number: BE-PFIZER INC-2010RR-34297

PATIENT
  Age: 52 Year
  Sex: Male
  Weight: 70 kg

DRUGS (1)
  1. VERAPAMIL HCL [Suspect]
     Indication: HYPERTROPHIC CARDIOMYOPATHY
     Dosage: 120 MG, SINGLE
     Route: 065

REACTIONS (4)
  - CIRCULATORY COLLAPSE [None]
  - ATRIOVENTRICULAR BLOCK FIRST DEGREE [None]
  - METABOLIC ACIDOSIS [None]
  - ANURIA [None]
